FAERS Safety Report 13354407 (Version 1)
Quarter: 2017Q1

REPORT INFORMATION
  Report Type: Spontaneous
  Country: DE (occurrence: DE)
  Receive Date: 20170321
  Receipt Date: 20170321
  Transmission Date: 20170429
  Serious: Yes (Hospitalization, Other)
  Sender: FDA-Public Use
  Company Number: DE-TEVA-748518GER

PATIENT
  Age: 90 Year
  Sex: Female

DRUGS (5)
  1. CLARITHROMYCIN-RATIOPHARM 250 MG FILMTABLETTEN [Suspect]
     Active Substance: CLARITHROMYCIN
     Indication: BRONCHITIS BACTERIAL
     Dosage: 250 MILLIGRAM DAILY;
     Route: 048
  2. PRADAXA [Concomitant]
     Active Substance: DABIGATRAN ETEXILATE MESYLATE
  3. L-THYROXIN [Concomitant]
     Active Substance: LEVOTHYROXINE SODIUM
  4. HCT [Concomitant]
     Active Substance: HYDROCHLOROTHIAZIDE
  5. VALSARTAN. [Concomitant]
     Active Substance: VALSARTAN

REACTIONS (5)
  - Anxiety [Recovering/Resolving]
  - Diarrhoea [Recovering/Resolving]
  - Incontinence [Recovering/Resolving]
  - Arrhythmia [Recovering/Resolving]
  - Heart rate increased [Recovering/Resolving]

NARRATIVE: CASE EVENT DATE: 2017
